FAERS Safety Report 16142255 (Version 1)
Quarter: 2019Q2

REPORT INFORMATION
  Report Type: Spontaneous
  Country: US (occurrence: US)
  Receive Date: 20190401
  Receipt Date: 20190401
  Transmission Date: 20190711
  Serious: No
  Sender: FDA-Public Use
  Company Number: US-SA-2019SA087446

PATIENT
  Age: 67 Year
  Sex: Male

DRUGS (2)
  1. LEMTRADA [Suspect]
     Active Substance: ALEMTUZUMAB
     Route: 041
  2. OCRELIZUMAB. [Concomitant]
     Active Substance: OCRELIZUMAB

REACTIONS (1)
  - Thyroid disorder [Unknown]
